FAERS Safety Report 7919668-8 (Version None)
Quarter: 2011Q4

REPORT INFORMATION
  Report Type: 
  Country: None (occurrence: None)
  Receive Date: 20111117
  Receipt Date: 20111111
  Transmission Date: 20120403
  Serious: Yes (Hospitalization)
  Sender: FDA-Public Use
  Company Number: DE-ABBOTT-11P-062-0873554-00

PATIENT
  Sex: Female

DRUGS (3)
  1. LISINOPRIL [Concomitant]
     Indication: PRODUCT USED FOR UNKNOWN INDICATION
     Dosage: 20MG DAILY
  2. COLESEVELAM [Concomitant]
     Indication: PRODUCT USED FOR UNKNOWN INDICATION
     Dosage: 625MG DAILY
  3. HUMIRA [Suspect]
     Indication: CROHN'S DISEASE
     Route: 058
     Dates: start: 20100311

REACTIONS (8)
  - WEIGHT DECREASED [None]
  - SPEECH DISORDER [None]
  - DIARRHOEA [None]
  - ECZEMA [None]
  - SYNCOPE [None]
  - ABDOMINAL DISCOMFORT [None]
  - VASCULAR STENOSIS [None]
  - NAUSEA [None]
